FAERS Safety Report 4630326-8 (Version None)
Quarter: 2005Q2

REPORT INFORMATION
  Report Type: 
  Country: None (occurrence: None)
  Receive Date: 20050406
  Receipt Date: 20050322
  Transmission Date: 20051028
  Serious: No
  Sender: FDA-Public Use
  Company Number: USA050393941

PATIENT
  Age: 84 Year
  Sex: Female

DRUGS (1)
  1. STRATTERA [Suspect]
     Dosage: 20 MG DAY

REACTIONS (3)
  - ALANINE AMINOTRANSFERASE INCREASED [None]
  - ASPARTATE AMINOTRANSFERASE INCREASED [None]
  - BLOOD BILIRUBIN ABNORMAL [None]
